FAERS Safety Report 9309437 (Version 1)
Quarter: 2013Q2

REPORT INFORMATION
  Report Type: Spontaneous
  Country: US (occurrence: US)
  Receive Date: 20130525
  Receipt Date: 20130525
  Transmission Date: 20140414
  Serious: No
  Sender: FDA-Public Use
  Company Number: US-BRISTOL-MYERS SQUIBB COMPANY-18584961

PATIENT
  Age: 47 Year
  Sex: Female
  Weight: 70.3 kg

DRUGS (6)
  1. BYDUREON 2MG VIAL + SYRINGE [Suspect]
     Indication: TYPE 2 DIABETES MELLITUS
     Route: 058
     Dates: start: 20130104
  2. METFORMIN [Concomitant]
     Indication: TYPE 2 DIABETES MELLITUS
  3. GLIMEPIRIDE [Concomitant]
     Indication: TYPE 2 DIABETES MELLITUS
  4. TYLENOL [Concomitant]
     Indication: INJECTION SITE PAIN
     Dates: start: 20130104
  5. IBUPROFEN [Concomitant]
     Indication: INJECTION SITE PAIN
     Dates: start: 20130104
  6. SOFTENERS, EMOLLIENTS [Concomitant]
     Indication: INJECTION SITE PAIN
     Dates: start: 20130104

REACTIONS (4)
  - Injection site nodule [Not Recovered/Not Resolved]
  - Injection site pruritus [Not Recovered/Not Resolved]
  - Injection site pain [Not Recovered/Not Resolved]
  - Weight decreased [Unknown]
